FAERS Safety Report 8166462-1 (Version None)
Quarter: 2012Q1

REPORT INFORMATION
  Report Type: 
  Country: None (occurrence: None)
  Receive Date: 20120227
  Receipt Date: 20111011
  Transmission Date: 20120608
  Serious: No
  Sender: FDA-Public Use
  Company Number: US-MYLANLABS-2011S1017425

PATIENT
  Age: 25 Year
  Sex: Male
  Weight: 61.24 kg

DRUGS (1)
  1. ISOTRETINOIN [Suspect]
     Indication: ACNE CYSTIC
     Route: 048
     Dates: start: 20110711, end: 20110817

REACTIONS (1)
  - LIVER FUNCTION TEST ABNORMAL [None]
